FAERS Safety Report 20497130 (Version 1)
Quarter: 2022Q1

REPORT INFORMATION
  Report Type: Spontaneous
  Country: US (occurrence: US)
  Receive Date: 20220221
  Receipt Date: 20220221
  Transmission Date: 20220423
  Serious: No
  Sender: FDA-Public Use
  Company Number: US-ARBOR PHARMACEUTICALS, LLC-US-2021ARB001489

PATIENT
  Sex: Male

DRUGS (2)
  1. EVEKEO ODT [Suspect]
     Active Substance: AMPHETAMINE SULFATE
     Indication: Product used for unknown indication
     Dosage: 10 MG
  2. EVEKEO ODT [Suspect]
     Active Substance: AMPHETAMINE SULFATE
     Dosage: 5 MG

REACTIONS (1)
  - Drug intolerance [Unknown]
